FAERS Safety Report 16061253 (Version 1)
Quarter: 2019Q1

REPORT INFORMATION
  Report Type: Spontaneous
  Country: US (occurrence: US)
  Receive Date: 20190312
  Receipt Date: 20190312
  Transmission Date: 20190418
  Serious: No
  Sender: FDA-Public Use
  Company Number: US-ROCHE-2264761

PATIENT
  Age: 72 Year
  Sex: Male

DRUGS (2)
  1. TECENTRIQ [Suspect]
     Active Substance: ATEZOLIZUMAB
     Dosage: ONGOING: NO
     Route: 042
     Dates: end: 20190118
  2. TECENTRIQ [Suspect]
     Active Substance: ATEZOLIZUMAB
     Indication: NON-SMALL CELL LUNG CANCER
     Dosage: ONGOING: NO
     Route: 042
     Dates: start: 20170117, end: 20180119

REACTIONS (1)
  - Dyspnoea [Unknown]
